FAERS Safety Report 18784922 (Version 1)
Quarter: 2021Q1

REPORT INFORMATION
  Report Type: Spontaneous
  Country: FR (occurrence: FR)
  Receive Date: 20210126
  Receipt Date: 20210126
  Transmission Date: 20210419
  Serious: Yes (Other)
  Sender: FDA-Public Use
  Company Number: FR-ASTRAZENECA-2021A005020

PATIENT
  Age: 24680 Day
  Sex: Female
  Weight: 88 kg

DRUGS (1)
  1. FORXIGA [Suspect]
     Active Substance: DAPAGLIFLOZIN
     Indication: DIABETES MELLITUS
     Dosage: 10.0MG UNKNOWN
     Route: 048
     Dates: start: 20200824, end: 20200930

REACTIONS (2)
  - Dysuria [Recovered/Resolved]
  - Perineal pain [Recovered/Resolved]

NARRATIVE: CASE EVENT DATE: 20200915
